FAERS Safety Report 4838329-5 (Version None)
Quarter: 2005Q4

REPORT INFORMATION
  Report Type: 
  Country: None (occurrence: None)
  Receive Date: 20051123
  Receipt Date: 20051114
  Transmission Date: 20060501
  Serious: Yes (Death)
  Sender: FDA-Public Use
  Company Number: 12864

PATIENT
  Age: 49 Year
  Sex: Male

DRUGS (3)
  1. MORPHINE [Suspect]
  2. DIHYDROCODEINE [Suspect]
  3. AMITRIPTYLINE HCL [Suspect]
     Indication: DEPRESSION

REACTIONS (2)
  - INTENTIONAL DRUG MISUSE [None]
  - SUDDEN DEATH [None]
